FAERS Safety Report 9348853 (Version 2)
Quarter: 2013Q3

REPORT INFORMATION
  Report Type: Spontaneous
  Country: FR (occurrence: FR)
  Receive Date: 20130614
  Receipt Date: 20130827
  Transmission Date: 20140515
  Serious: Yes (Death, Hospitalization, Other)
  Sender: FDA-Public Use
  Company Number: FR-TEVA-411839ISR

PATIENT
  Age: 87 Year
  Sex: Female

DRUGS (7)
  1. FUROSEMIDE TEVA 40 MG [Suspect]
     Dosage: SINCE SEVERAL YEARS
  2. BISOPROLOL [Concomitant]
  3. RAMIPRIL [Concomitant]
  4. PLAVIX [Concomitant]
  5. VENLAFAXIN [Concomitant]
  6. DOLIPRANE [Concomitant]
  7. GABAPENTIN [Concomitant]

REACTIONS (5)
  - Infarction [Fatal]
  - Pulmonary oedema [Unknown]
  - Renal disorder [Unknown]
  - Fatigue [Unknown]
  - Somnolence [Unknown]
